FAERS Safety Report 14529732 (Version 2)
Quarter: 2018Q1

REPORT INFORMATION
  Report Type: Report from Study
  Country: VE (occurrence: VE)
  Receive Date: 20180214
  Receipt Date: 20180314
  Transmission Date: 20180509
  Serious: Yes (Hospitalization)
  Sender: FDA-Public Use
  Company Number: PHHY2018VE022347

PATIENT
  Sex: Male

DRUGS (4)
  1. SANDOSTATIN LAR DEPOT [Suspect]
     Active Substance: OCTREOTIDE ACETATE
     Indication: CARCINOID SYNDROME
  2. AFINITOR [Suspect]
     Active Substance: EVEROLIMUS
     Indication: NEUROENDOCRINE TUMOUR
     Dosage: 10 MG, QD
     Route: 048
     Dates: start: 20170501
  3. AFINITOR [Suspect]
     Active Substance: EVEROLIMUS
     Indication: NEOPLASM MALIGNANT
  4. SANDOSTATIN LAR DEPOT [Suspect]
     Active Substance: OCTREOTIDE ACETATE
     Indication: NEUROENDOCRINE TUMOUR
     Dosage: 20 MG, QMO
     Route: 065
     Dates: start: 20170301

REACTIONS (9)
  - Inflammation [Unknown]
  - Malaise [Unknown]
  - Arthralgia [Recovered/Resolved]
  - Peripheral swelling [Recovered/Resolved]
  - Swelling face [Recovered/Resolved]
  - Swelling [Unknown]
  - Diarrhoea [Not Recovered/Not Resolved]
  - Skin discolouration [Recovering/Resolving]
  - Malaise [Recovered/Resolved]
